FAERS Safety Report 10654547 (Version 1)
Quarter: 2014Q4

REPORT INFORMATION
  Report Type: Other
  Country: FR (occurrence: FR)
  Receive Date: 20141216
  Receipt Date: 20141216
  Transmission Date: 20150529
  Serious: Yes (Hospitalization)
  Sender: FDA-Public Use
  Company Number: FR-MYLANLABS-2014M1012871

PATIENT

DRUGS (39)
  1. DEXAMETHASONE MYLAN [Suspect]
     Active Substance: DEXAMETHASONE
     Dosage: 40 UNK, UNK
     Route: 042
     Dates: start: 20140808, end: 20140808
  2. DEXAMETHASONE MYLAN [Suspect]
     Active Substance: DEXAMETHASONE
     Dosage: 40 MG, QD
     Route: 042
     Dates: start: 20140725, end: 20140725
  3. DEPO-MEDROL [Suspect]
     Active Substance: METHYLPREDNISOLONE ACETATE
     Indication: LYMPHOCYTIC LEUKAEMIA
  4. VINCRISTINE HOSPIRA [Suspect]
     Active Substance: VINCRISTINE
     Dosage: 1 MG, QD
     Route: 042
     Dates: start: 20140717, end: 20140717
  5. DEXAMETHASONE MYLAN [Suspect]
     Active Substance: DEXAMETHASONE
     Dosage: 40 UNK, UNK
     Route: 042
     Dates: start: 20140717, end: 20140717
  6. DEXAMETHASONE MYLAN [Suspect]
     Active Substance: DEXAMETHASONE
     Dosage: 40 UNK, UNK
     Route: 042
     Dates: start: 20140718, end: 20140718
  7. VINCRISTINE HOSPIRA [Suspect]
     Active Substance: VINCRISTINE
     Dosage: 1 MG, QD
     Route: 042
     Dates: start: 20140724, end: 20140724
  8. GLIVEC [Suspect]
     Active Substance: IMATINIB MESYLATE
     Indication: LYMPHOCYTIC LEUKAEMIA
     Dosage: 400 MG, QD
     Route: 048
     Dates: start: 20140717
  9. KARDEGIC [Concomitant]
     Active Substance: ASPIRIN LYSINE
     Indication: PRODUCT USED FOR UNKNOWN INDICATION
     Dosage: 175 MG, QD
     Route: 048
  10. CERNEVIT [Concomitant]
     Active Substance: VITAMINS
     Indication: PRODUCT USED FOR UNKNOWN INDICATION
     Dosage: UNK
  11. DEXAMETHASONE MYLAN [Suspect]
     Active Substance: DEXAMETHASONE
     Dosage: 40 UNK, UNK
     Route: 042
     Dates: start: 20140731, end: 20140731
  12. DEXAMETHASONE MYLAN [Suspect]
     Active Substance: DEXAMETHASONE
     Dosage: 40 UNK, UNK
     Route: 042
     Dates: start: 20140801, end: 20140801
  13. AMLOR [Concomitant]
     Active Substance: AMLODIPINE BESYLATE
     Indication: HYPERTENSION
     Dosage: 5 MG, QD
     Route: 048
     Dates: end: 201408
  14. SMECTA [Concomitant]
     Active Substance: MONTMORILLONITE
     Indication: PRODUCT USED FOR UNKNOWN INDICATION
     Dosage: 3 DF, QD
     Route: 048
     Dates: end: 201408
  15. PHOSPHONEUROS [Concomitant]
     Active Substance: CALCIUM PHOSPHATE, DIBASIC, ANHYDROUS\MAGNESIUM GLYCEROPHOSPHATE\PHOSPHORIC ACID\SODIUM PHOSPHATE, DIBASIC
     Indication: PRODUCT USED FOR UNKNOWN INDICATION
     Dosage: 50 DF, TID
  16. METHOTREXATE [Suspect]
     Active Substance: METHOTREXATE
     Indication: LYMPHOCYTIC LEUKAEMIA
     Dosage: 15 MG, QD
     Route: 037
     Dates: start: 20140717, end: 20140717
  17. METHOTREXATE [Suspect]
     Active Substance: METHOTREXATE
     Dosage: 15 MG, QD
     Route: 037
     Dates: start: 20140801, end: 20140801
  18. VINCRISTINE HOSPIRA [Suspect]
     Active Substance: VINCRISTINE
     Dosage: 1 MG, QD
     Route: 042
     Dates: start: 20140807, end: 20140807
  19. NONAN [Concomitant]
     Indication: PRODUCT USED FOR UNKNOWN INDICATION
     Dosage: UNK
     Dates: end: 201408
  20. GRANOCYTE [Concomitant]
     Active Substance: LENOGRASTIM
     Indication: LYMPHOCYTIC LEUKAEMIA
     Dosage: UNK
     Dates: start: 20140731
  21. METHOTREXATE [Suspect]
     Active Substance: METHOTREXATE
     Dosage: 15 MG, QD
     Route: 037
     Dates: start: 20140725, end: 20140725
  22. DEXAMETHASONE MYLAN [Suspect]
     Active Substance: DEXAMETHASONE
     Dosage: 18.3 MG, QD
     Route: 042
     Dates: start: 20140717, end: 20140717
  23. CYTARABINE. [Suspect]
     Active Substance: CYTARABINE
     Dosage: 40 MG, QD
     Route: 037
     Dates: start: 20140808, end: 20140808
  24. CYTARABINE. [Suspect]
     Active Substance: CYTARABINE
     Indication: LYMPHOCYTIC LEUKAEMIA
  25. GLUCOSE [Concomitant]
     Active Substance: DEXTROSE
     Indication: PRODUCT USED FOR UNKNOWN INDICATION
     Dosage: UNK
     Dates: end: 201408
  26. CYTARABINE. [Suspect]
     Active Substance: CYTARABINE
     Dosage: 40 MG, QD
     Route: 037
     Dates: start: 20140801, end: 20140801
  27. DEPO-MEDROL [Suspect]
     Active Substance: METHYLPREDNISOLONE ACETATE
     Dosage: 40 MG, QD
     Route: 037
     Dates: start: 20140801, end: 20140801
  28. VINCRISTINE HOSPIRA [Suspect]
     Active Substance: VINCRISTINE
     Dosage: 1 MG, QD
     Route: 042
     Dates: start: 20140731, end: 20140731
  29. VINCRISTINE HOSPIRA [Suspect]
     Active Substance: VINCRISTINE
     Indication: LYMPHOCYTIC LEUKAEMIA
  30. TIAPRIDAL                          /00435701/ [Concomitant]
     Active Substance: TIAPRIDE HYDROCHLORIDE
     Indication: PRODUCT USED FOR UNKNOWN INDICATION
     Dosage: 50 MG, TID
     Route: 048
     Dates: end: 201408
  31. DEPAMIDE [Concomitant]
     Active Substance: VALPROMIDE
     Indication: PRODUCT USED FOR UNKNOWN INDICATION
     Dosage: 300 MG, BID
     Route: 048
  32. METHOTREXATE [Suspect]
     Active Substance: METHOTREXATE
     Dosage: 15 MG, QD
     Route: 037
     Dates: start: 20140808, end: 20140808
  33. DEXAMETHASONE MYLAN [Suspect]
     Active Substance: DEXAMETHASONE
     Dosage: 40 UNK, UNK
     Route: 042
     Dates: start: 20140724, end: 20140724
  34. DEXAMETHASONE MYLAN [Suspect]
     Active Substance: DEXAMETHASONE
     Indication: LYMPHOCYTIC LEUKAEMIA
  35. DEPO-MEDROL [Suspect]
     Active Substance: METHYLPREDNISOLONE ACETATE
     Dosage: 40 MG, QD
     Route: 037
     Dates: start: 20140725, end: 20140725
  36. DEPO-MEDROL [Suspect]
     Active Substance: METHYLPREDNISOLONE ACETATE
     Dosage: 40 MG, QD
     Route: 037
     Dates: start: 20140808, end: 20140808
  37. LASILIX                            /00032601/ [Concomitant]
     Active Substance: FUROSEMIDE
     Indication: PRODUCT USED FOR UNKNOWN INDICATION
     Dosage: 20 MG, QD
     Route: 048
     Dates: end: 201408
  38. TRIATEC                            /00116401/ [Concomitant]
     Active Substance: HYDROCHLOROTHIAZIDE
     Indication: HYPERTENSION
     Dosage: 5 MG, QD
     Route: 048
  39. DEXAMETHASONE MYLAN [Suspect]
     Active Substance: DEXAMETHASONE
     Dosage: 40 UNK, UNK
     Route: 042
     Dates: start: 20140807, end: 20140807

REACTIONS (9)
  - Condition aggravated [Recovered/Resolved]
  - Fungal infection [Recovered/Resolved]
  - Thrombocytopenia [Recovered/Resolved]
  - Anaemia [Recovered/Resolved]
  - Leukopenia [Recovered/Resolved]
  - Vomiting [Recovered/Resolved]
  - Nausea [Recovered/Resolved]
  - Lymphopenia [Recovered/Resolved]
  - Mucosal inflammation [Recovered/Resolved]

NARRATIVE: CASE EVENT DATE: 20140723
